FAERS Safety Report 25272304 (Version 2)
Quarter: 2025Q2

REPORT INFORMATION
  Report Type: Report from Study
  Country: EG (occurrence: EG)
  Receive Date: 20250506
  Receipt Date: 20250508
  Transmission Date: 20250717
  Serious: No
  Sender: SANDOZ
  Company Number: EG-SANDOZ-SDZ2025EG028206

PATIENT
  Age: 16 Year
  Sex: Female

DRUGS (2)
  1. OMNITROPE [Suspect]
     Active Substance: SOMATROPIN
     Indication: Growth hormone deficiency
     Route: 058
     Dates: start: 20221005, end: 20250101
  2. OMNITROPE [Suspect]
     Active Substance: SOMATROPIN
     Indication: Short stature

REACTIONS (5)
  - Expired device used [Unknown]
  - Off label use [Unknown]
  - Product availability issue [Unknown]
  - Product substitution [Unknown]
  - Device mechanical issue [Unknown]

NARRATIVE: CASE EVENT DATE: 20241005
